FAERS Safety Report 14525020 (Version 1)
Quarter: 2018Q1

REPORT INFORMATION
  Report Type: Spontaneous
  Country: CA (occurrence: CA)
  Receive Date: 20180213
  Receipt Date: 20180213
  Transmission Date: 20180509
  Serious: Yes (Hospitalization)
  Sender: FDA-Public Use
  Company Number: CA-TEVA-2018-CA-857450

PATIENT
  Age: 57 Year
  Sex: Female
  Weight: 72 kg

DRUGS (15)
  1. NADOLOL. [Concomitant]
     Active Substance: NADOLOL
  2. SENNATAB (SENNOSIDES USP TABLETS) 8.6 MG [Concomitant]
  3. VENTOLIN HFA [Concomitant]
     Active Substance: ALBUTEROL SULFATE
     Dosage: METERED-DOSE (AEROSOL)
  4. ASA [Concomitant]
     Active Substance: ASPIRIN
  5. GLICLAZIDE [Concomitant]
     Active Substance: GLICLAZIDE
  6. ALENDRONATE [Suspect]
     Active Substance: ALENDRONATE SODIUM
     Indication: OSTEOPOROSIS
     Dosage: 10 MILLIGRAM DAILY;
     Route: 048
  7. GLUCOPHAGE [Concomitant]
     Active Substance: METFORMIN HYDROCHLORIDE
  8. LIPITOR [Concomitant]
     Active Substance: ATORVASTATIN CALCIUM
  9. APO-PREDNISONE [Concomitant]
     Active Substance: PREDNISONE
  10. CYMBALTA [Concomitant]
     Active Substance: DULOXETINE HYDROCHLORIDE
  11. VITAMIN D [Concomitant]
     Active Substance: CHOLECALCIFEROL
  12. CALCIUM [Concomitant]
     Active Substance: CALCIUM
  13. ALTACE [Concomitant]
     Active Substance: RAMIPRIL
  14. ANUSOL-HC SUPPOSITORIES [Concomitant]
  15. MS IR TAB 5MG [Concomitant]

REACTIONS (3)
  - Open reduction of fracture [Recovering/Resolving]
  - Humerus fracture [Recovering/Resolving]
  - Atypical femur fracture [Recovering/Resolving]
